FAERS Safety Report 12725275 (Version 1)
Quarter: 2016Q3

REPORT INFORMATION
  Report Type: Spontaneous
  Country: US (occurrence: US)
  Receive Date: 20160908
  Receipt Date: 20160908
  Transmission Date: 20161109
  Serious: No
  Sender: FDA-Public Use
  Company Number: US-SHIRE-US201612049

PATIENT
  Sex: Male
  Weight: 89.8 kg

DRUGS (2)
  1. ADDERALL XR [Suspect]
     Active Substance: AMPHETAMINE ASPARTATE\AMPHETAMINE SULFATE\DEXTROAMPHETAMINE SACCHARATE\DEXTROAMPHETAMINE SULFATE
     Indication: PRODUCT USED FOR UNKNOWN INDICATION
     Dosage: 10 MG, UNKNOWN
     Route: 048
     Dates: start: 2013
  2. ADDERALL XR [Suspect]
     Active Substance: AMPHETAMINE ASPARTATE\AMPHETAMINE SULFATE\DEXTROAMPHETAMINE SACCHARATE\DEXTROAMPHETAMINE SULFATE
     Dosage: UNK UNK , UNKNOWN(PULLED APART SECOND ADDERALL 10 MG AND TOOK AN UNKNOWN AMOUNT DESCRIBED AS 5MG)
     Route: 048
     Dates: start: 2013

REACTIONS (5)
  - Drug diversion [Recovered/Resolved]
  - Nervousness [Recovered/Resolved]
  - Intentional product misuse [Recovered/Resolved]
  - Wrong technique in product usage process [Recovered/Resolved]
  - Therapeutic response unexpected [Recovered/Resolved]

NARRATIVE: CASE EVENT DATE: 2013
